FAERS Safety Report 4886520-4 (Version None)
Quarter: 2005Q4

REPORT INFORMATION
  Report Type: 
  Country: None (occurrence: None)
  Receive Date: 20051220
  Receipt Date: 20050105
  Transmission Date: 20060501
  Serious: Yes (Other)
  Sender: FDA-Public Use
  Company Number: HQWYE431607JAN05

PATIENT
  Age: 16 Year
  Sex: Female
  Weight: 56.75 kg

DRUGS (2)
  1. EFFEXOR XR [Suspect]
     Indication: ANXIETY
     Dosage: 150 MG 1X PER 1 DAY, ORAL
     Route: 048
     Dates: start: 20030101
  2. UNSPECIFIED CONTRACEPTIVE (UNSPECIFIED CONTRACEPTIVE) [Concomitant]

REACTIONS (4)
  - DEPRESSED MOOD [None]
  - DRUG INEFFECTIVE [None]
  - SUICIDAL IDEATION [None]
  - WEIGHT INCREASED [None]
